FAERS Safety Report 8312053-9 (Version None)
Quarter: 2012Q2

REPORT INFORMATION
  Report Type: 
  Country: None (occurrence: None)
  Receive Date: 20120425
  Receipt Date: 20120413
  Transmission Date: 20120825
  Serious: Yes (Hospitalization)
  Sender: FDA-Public Use
  Company Number: HR-ELI_LILLY_AND_COMPANY-HR201204004412

PATIENT
  Sex: Male

DRUGS (2)
  1. PROMAZINE HYDROCHLORIDE [Concomitant]
     Dosage: UNK, UNKNOWN
     Dates: start: 20120401
  2. OLANZAPINE [Suspect]
     Indication: SCHIZOPHRENIA
     Dosage: 300 MG, UNK
     Route: 030

REACTIONS (1)
  - SCHIZOPHRENIA [None]
